FAERS Safety Report 7406058-X (Version None)
Quarter: 2011Q2

REPORT INFORMATION
  Report Type: 
  Country: None (occurrence: None)
  Receive Date: 20110411
  Receipt Date: 20110401
  Transmission Date: 20111010
  Serious: Yes (Death)
  Sender: FDA-Public Use
  Company Number: B0709848A

PATIENT
  Age: 17 Year
  Sex: Male

DRUGS (3)
  1. CYTOSINE [Concomitant]
  2. FLUDARABINE [Concomitant]
  3. ATRIANCE [Suspect]
     Route: 042
     Dates: start: 20090501

REACTIONS (3)
  - THROMBOCYTOPENIA [None]
  - DISEASE PROGRESSION [None]
  - DRUG INEFFECTIVE [None]
